FAERS Safety Report 9748723 (Version 1)
Quarter: 2013Q4

REPORT INFORMATION
  Report Type: Report from Study
  Country: US (occurrence: US)
  Receive Date: 20131212
  Receipt Date: 20131212
  Transmission Date: 20140711
  Serious: Yes (Other)
  Sender: FDA-Public Use
  Company Number: US-UCBSA-105567

PATIENT
  Age: 70 Year
  Sex: Female
  Weight: 56.7 kg

DRUGS (1)
  1. CERTOLIZUMAB PEGOL [Suspect]
     Indication: CROHN^S DISEASE
     Dosage: NUMBER OF DOSES: 63
     Route: 058
     Dates: start: 20090223

REACTIONS (1)
  - Basal cell carcinoma [Recovered/Resolved]
